FAERS Safety Report 12789601 (Version 3)
Quarter: 2017Q2

REPORT INFORMATION
  Report Type: Spontaneous
  Country: CA (occurrence: CA)
  Receive Date: 20160928
  Receipt Date: 20170414
  Transmission Date: 20170830
  Serious: Yes (Hospitalization)
  Sender: FDA-Public Use
  Company Number: CA-UNITED THERAPEUTICS-UNT-2016-015030

PATIENT
  Age: 70 Year
  Sex: Female

DRUGS (1)
  1. REMODULIN [Suspect]
     Active Substance: TREPROSTINIL
     Indication: PULMONARY ARTERIAL HYPERTENSION
     Dosage: UNK, CONTINUING
     Route: 058
     Dates: start: 20150811

REACTIONS (4)
  - Spinal compression fracture [Not Recovered/Not Resolved]
  - Infusion site discharge [Unknown]
  - Back pain [Not Recovered/Not Resolved]
  - Oxygen saturation decreased [Not Recovered/Not Resolved]

NARRATIVE: CASE EVENT DATE: 2016
